FAERS Safety Report 4982880-4 (Version None)
Quarter: 2006Q2

REPORT INFORMATION
  Report Type: 
  Country: None (occurrence: None)
  Receive Date: 20060420
  Receipt Date: 20060407
  Transmission Date: 20061013
  Serious: Yes (Hospitalization)
  Sender: FDA-Public Use
  Company Number: US-2006-006492

PATIENT
  Age: 35 Year
  Sex: Female

DRUGS (1)
  1. MIRENA [Suspect]
     Dosage: 20 UG, CONT, INTRA-UTERINE
     Route: 015
     Dates: start: 20060109, end: 20060213

REACTIONS (3)
  - BURNING SENSATION [None]
  - DIARRHOEA [None]
  - RUPTURED ECTOPIC PREGNANCY [None]
